FAERS Safety Report 19019775 (Version 1)
Quarter: 2021Q1

REPORT INFORMATION
  Report Type: Spontaneous
  Country: US (occurrence: US)
  Receive Date: 20210317
  Receipt Date: 20210317
  Transmission Date: 20210420
  Serious: Yes (Disabling)
  Sender: FDA-Public Use
  Company Number: None

PATIENT
  Age: 35 Year
  Sex: Female
  Weight: 69.75 kg

DRUGS (8)
  1. L?GLUTAMINE [Concomitant]
  2. PREDNISONE. [Concomitant]
     Active Substance: PREDNISONE
  3. GLUTATHIONE [Concomitant]
     Active Substance: GLUTATHIONE
  4. XARELTO [Concomitant]
     Active Substance: RIVAROXABAN
  5. IRON [Concomitant]
     Active Substance: IRON
  6. LABETALOL [Concomitant]
     Active Substance: LABETALOL\LABETALOL HYDROCHLORIDE
  7. MYCOPHENOLATE MODEFETIL [Suspect]
     Active Substance: MYCOPHENOLATE MOFETIL
     Indication: LUPUS NEPHRITIS
     Dosage: ?          QUANTITY:60 CAPSULE(S);?
     Route: 048
     Dates: start: 20210225, end: 20210312
  8. ORTHOBIOTIC [Concomitant]

REACTIONS (7)
  - Somnolence [None]
  - Memory impairment [None]
  - Fall [None]
  - Feeling abnormal [None]
  - Balance disorder [None]
  - Motor dysfunction [None]
  - Asthenia [None]

NARRATIVE: CASE EVENT DATE: 20210311
